FAERS Safety Report 12262216 (Version 1)
Quarter: 2016Q2

REPORT INFORMATION
  Report Type: Spontaneous
  Country: US (occurrence: None)
  Receive Date: 20160412
  Receipt Date: 20160412
  Transmission Date: 20160815
  Serious: Yes (Life-Threatening, Hospitalization)
  Sender: FDA-Public Use
  Company Number: None

PATIENT
  Age: 53 Year
  Sex: Female
  Weight: 44 kg

DRUGS (14)
  1. ASPIRIN. [Concomitant]
     Active Substance: ASPIRIN
  2. SODIUM BICARBONATE. [Concomitant]
     Active Substance: SODIUM BICARBONATE
  3. BELATACEPT BRISTOL MYERS SQUIBB [Suspect]
     Active Substance: BELATACEPT
     Indication: PROPHYLAXIS AGAINST TRANSPLANT REJECTION
     Route: 042
     Dates: start: 20140617, end: 20160210
  4. SIROLIMUS. [Concomitant]
     Active Substance: SIROLIMUS
  5. PREDNISONE. [Concomitant]
     Active Substance: PREDNISONE
  6. MYCOPHENOLIC ACID. [Concomitant]
     Active Substance: MYCOPHENOLIC ACID
  7. AZATHIOPRINE. [Concomitant]
     Active Substance: AZATHIOPRINE
  8. OMEPRAZOLE. [Concomitant]
     Active Substance: OMEPRAZOLE
  9. PRAVASTATIN [Concomitant]
     Active Substance: PRAVASTATIN\PRAVASTATIN SODIUM
  10. IRON SULFATE [Concomitant]
     Active Substance: FERROUS SULFATE ANHYDROUS
  11. DARBEPOIETIN [Concomitant]
  12. ERGOCALCIFEROL. [Concomitant]
     Active Substance: ERGOCALCIFEROL
  13. FILGRASTIM [Concomitant]
     Active Substance: FILGRASTIM
  14. METOPROLOL. [Concomitant]
     Active Substance: METOPROLOL

REACTIONS (4)
  - Small intestinal obstruction [None]
  - Hypotension [None]
  - Acute kidney injury [None]
  - Spindle cell sarcoma [None]

NARRATIVE: CASE EVENT DATE: 20160227
